FAERS Safety Report 7604093-X (Version None)
Quarter: 2011Q2

REPORT INFORMATION
  Report Type: 
  Country: None (occurrence: None)
  Receive Date: 20110630
  Receipt Date: 20110620
  Transmission Date: 20111010
  Serious: Yes (Death, Hospitalization)
  Sender: FDA-Public Use
  Company Number: TPA2011A03253

PATIENT
  Age: 70 Year
  Sex: Female

DRUGS (8)
  1. BONALON (ALENDRONIC ACID) [Concomitant]
  2. CRESTOR [Concomitant]
  3. SEIBULE (MIGLITOL) [Concomitant]
  4. NAUZELIN (DOMPERIDONE) [Concomitant]
  5. MICARDIS [Concomitant]
  6. PLAVIX [Concomitant]
  7. THYRADIN (THYROID) [Concomitant]
  8. FEBURIC (FEBUXOSTAT) [Suspect]
     Indication: HYPERURICAEMIA
     Dosage: 20 MG (20 MG, 1 IN 1 D), PER ORAL
     Route: 048
     Dates: start: 20110606

REACTIONS (1)
  - HEPATITIS ACUTE [None]
